FAERS Safety Report 14913280 (Version 4)
Quarter: 2018Q4

REPORT INFORMATION
  Report Type: Spontaneous
  Country: ES (occurrence: ES)
  Receive Date: 20180518
  Receipt Date: 20181221
  Transmission Date: 20190204
  Serious: Yes (Hospitalization)
  Sender: FDA-Public Use
  Company Number: PHHY2018ES002425

PATIENT
  Age: 45 Year
  Sex: Female

DRUGS (5)
  1. TYSABRI [Suspect]
     Active Substance: NATALIZUMAB
     Dosage: 300 MG, Q4W
     Route: 042
     Dates: start: 20120207, end: 20131115
  2. TYSABRI [Suspect]
     Active Substance: NATALIZUMAB
     Dosage: UNK
     Route: 042
  3. TYSABRI [Suspect]
     Active Substance: NATALIZUMAB
     Indication: RELAPSING-REMITTING MULTIPLE SCLEROSIS
     Dosage: 300 MG, Q4W
     Route: 042
     Dates: start: 20070907, end: 20100315
  4. GILENYA [Suspect]
     Active Substance: FINGOLIMOD HYDROCHLORIDE
     Indication: MULTIPLE SCLEROSIS
     Route: 065
  5. TYSABRI [Suspect]
     Active Substance: NATALIZUMAB
     Dosage: 300 MG, Q4W
     Route: 042
     Dates: start: 20170502, end: 20170516

REACTIONS (4)
  - Progressive multifocal leukoencephalopathy [Recovered/Resolved with Sequelae]
  - Multiple sclerosis relapse [Unknown]
  - Immune reconstitution inflammatory syndrome [Not Recovered/Not Resolved]
  - Secondary progressive multiple sclerosis [Unknown]

NARRATIVE: CASE EVENT DATE: 201703
